FAERS Safety Report 12134776 (Version 5)
Quarter: 2016Q3

REPORT INFORMATION
  Report Type: Spontaneous
  Country: US (occurrence: US)
  Receive Date: 20160301
  Receipt Date: 20160706
  Transmission Date: 20161109
  Serious: Yes (Death)
  Sender: FDA-Public Use
  Company Number: US-ACTELION PHARMACEUTICALS US, INC.-A-US2016-131703

PATIENT
  Age: 82 Year
  Sex: Male
  Weight: 60.77 kg

DRUGS (4)
  1. SILDENAFIL. [Concomitant]
     Active Substance: SILDENAFIL
  2. OPSUMIT [Suspect]
     Active Substance: MACITENTAN
     Indication: PULMONARY ARTERIAL HYPERTENSION
     Dosage: 10 MG, QD
     Route: 048
     Dates: start: 20141007, end: 20160311
  3. UPTRAVI [Suspect]
     Active Substance: SELEXIPAG
     Indication: PULMONARY ARTERIAL HYPERTENSION
     Dosage: 200 MCG, BID
     Route: 048
     Dates: start: 20160203, end: 20160212
  4. UPTRAVI [Suspect]
     Active Substance: SELEXIPAG
     Dosage: 400 MCG, BID
     Route: 048
     Dates: end: 20160311

REACTIONS (10)
  - Pulmonary arterial hypertension [Fatal]
  - Presyncope [Unknown]
  - Malaise [Unknown]
  - General physical health deterioration [Unknown]
  - Dyspnoea [Unknown]
  - Diarrhoea [Unknown]
  - Disease progression [Fatal]
  - Myalgia [Unknown]
  - Tremor [Unknown]
  - Syncope [Unknown]

NARRATIVE: CASE EVENT DATE: 201602
